FAERS Safety Report 11810864 (Version 1)
Quarter: 2015Q4

REPORT INFORMATION
  Report Type: Spontaneous
  Country: US (occurrence: US)
  Receive Date: 20151208
  Receipt Date: 20151208
  Transmission Date: 20160305
  Serious: Yes (Death, Hospitalization, Other)
  Sender: FDA-Public Use
  Company Number: US-BAYER-2015-477831

PATIENT
  Age: 48 Year
  Sex: Male

DRUGS (6)
  1. REGORAFENIB [Suspect]
     Active Substance: REGORAFENIB
     Indication: ADENOCARCINOMA OF COLON
     Dosage: 160 MG, DAY 1-21 OF 28 DAYS CYCLE
     Route: 048
     Dates: start: 201310
  2. 5-FU [Suspect]
     Active Substance: FLUOROURACIL
     Indication: ADENOCARCINOMA OF COLON
     Dosage: 400 MG/M2, QD ON DAY 1
     Route: 040
  3. 5-FU [Suspect]
     Active Substance: FLUOROURACIL
     Indication: ADENOCARCINOMA OF COLON
     Dosage: 2400 MG/M2, Q2WK
     Route: 041
     Dates: start: 201310
  4. REGORAFENIB [Suspect]
     Active Substance: REGORAFENIB
     Indication: METASTASES TO LUNG
     Dosage: FOR 3 CYCLES
  5. REGORAFENIB [Suspect]
     Active Substance: REGORAFENIB
     Indication: METASTASES TO LUNG
     Dosage: 80 MG,QD
     Route: 048
  6. LEUCOVORIN. [Concomitant]
     Active Substance: LEUCOVORIN
     Indication: ADENOCARCINOMA OF COLON
     Dosage: 250 MG/M2, QD ON DAY 1
     Dates: start: 201310

REACTIONS (11)
  - Thrombocytopenia [None]
  - Septic shock [Fatal]
  - Neutropenia [None]
  - Mucosal inflammation [None]
  - Diarrhoea [None]
  - Tumour necrosis [None]
  - Hyperbilirubinaemia [None]
  - Sepsis [None]
  - Hepatic function abnormal [None]
  - Infected neoplasm [None]
  - Rectal adenocarcinoma [None]
